FAERS Safety Report 18975906 (Version 1)
Quarter: 2021Q1

REPORT INFORMATION
  Report Type: Spontaneous
  Country: JP (occurrence: JP)
  Receive Date: 20210305
  Receipt Date: 20210305
  Transmission Date: 20210420
  Serious: Yes (Hospitalization, Other)
  Sender: FDA-Public Use
  Company Number: JP-GILEAD-2021-0519493

PATIENT
  Age: 59 Year
  Sex: Male
  Weight: 64 kg

DRUGS (14)
  1. HUSCODE [Suspect]
     Active Substance: CHLORPHENIRAMINE MALEATE\DIHYDROCODEINE PHOSPHATE\METHYLEPHEDRINE HYDROCHLORIDE, DL-
     Indication: COUGH
     Dosage: 10 ML, AFTER EACH MEAL
     Route: 065
     Dates: start: 20210116, end: 20210123
  2. SOLU?MEDROL [Concomitant]
     Active Substance: METHYLPREDNISOLONE SODIUM SUCCINATE
     Dosage: 40 MG
     Dates: start: 20210121, end: 20210122
  3. SOLU?MEDROL [Concomitant]
     Active Substance: METHYLPREDNISOLONE SODIUM SUCCINATE
     Indication: COVID-19
     Dosage: 125 MG
     Dates: start: 20210116, end: 20210118
  4. VEKLURY [Suspect]
     Active Substance: REMDESIVIR
     Dosage: 100 MG, QD
     Route: 041
     Dates: start: 20210119, end: 20210121
  5. BACTRAMIN [Concomitant]
     Active Substance: SULFAMETHOXAZOLE\TRIMETHOPRIM
     Dosage: 1 DOSAGE FORM, QOD, AFTER BREAKFAST
     Dates: start: 20210117, end: 20210202
  6. CALONAL [Concomitant]
     Active Substance: ACETAMINOPHEN
     Indication: PAIN
  7. SOLU?MEDROL [Concomitant]
     Active Substance: METHYLPREDNISOLONE SODIUM SUCCINATE
     Dosage: 80 MG
     Dates: start: 20210119, end: 20210120
  8. CALONAL [Concomitant]
     Active Substance: ACETAMINOPHEN
     Indication: PYREXIA
     Dosage: 1 DOSAGE FORM , WHEN FEVER / PAIN
  9. HUSCODE [Suspect]
     Active Substance: CHLORPHENIRAMINE MALEATE\DIHYDROCODEINE PHOSPHATE\METHYLEPHEDRINE HYDROCHLORIDE, DL-
     Dosage: ONLY WHEN THE PATIENT HAS A SEVERE COUGH
     Route: 065
     Dates: start: 20210124
  10. MONTELUKAST OD [Concomitant]
     Dosage: 10 MG, AFTER DINNER
     Dates: start: 20210118, end: 20210128
  11. NEXIUM [Concomitant]
     Active Substance: ESOMEPRAZOLE MAGNESIUM
     Dosage: 20 MG,, AFTER BREAKFAST
     Dates: start: 20210117
  12. VEKLURY [Suspect]
     Active Substance: REMDESIVIR
     Indication: COVID-19
     Dosage: 200 MG, QD
     Route: 041
     Dates: start: 20210118, end: 20210118
  13. AVIGAN [Concomitant]
     Active Substance: FAVIPIRAVIR
     Indication: COVID-19
     Dosage: 18 DOSAGE FORM, AFTER BREAKFAST AND DINNER
     Dates: start: 20210116, end: 20210117
  14. AVIGAN [Concomitant]
     Active Substance: FAVIPIRAVIR
     Dosage: 18 DOSAGE FORM, AFTER BREAKFAST AND DINNER
     Dates: start: 20210117

REACTIONS (1)
  - Drug-induced liver injury [Recovering/Resolving]

NARRATIVE: CASE EVENT DATE: 20210122
